FAERS Safety Report 5275525-X (Version None)
Quarter: 2007Q1

REPORT INFORMATION
  Report Type: 
  Country: None (occurrence: None)
  Receive Date: 20070326
  Receipt Date: 20070314
  Transmission Date: 20070707
  Serious: Yes (Hospitalization)
  Sender: FDA-Public Use
  Company Number: PHRM2007FR01051

PATIENT
  Age: 90 Year
  Sex: Female

DRUGS (2)
  1. EXELON [Suspect]
     Route: 048
     Dates: start: 20051201, end: 20060501
  2. EXELON [Suspect]
     Dosage: 1.5 MG, BID
     Route: 048
     Dates: start: 20060828, end: 20060919

REACTIONS (8)
  - AGITATION [None]
  - ASTHENIA [None]
  - DEPRESSED LEVEL OF CONSCIOUSNESS [None]
  - DIARRHOEA [None]
  - HYPOTENSION [None]
  - HYPOTHERMIA [None]
  - SOMNOLENCE [None]
  - VOMITING [None]
